FAERS Safety Report 10237465 (Version 1)
Quarter: 2014Q2

REPORT INFORMATION
  Report Type: Report from Study
  Country: GB (occurrence: GB)
  Receive Date: 20140615
  Receipt Date: 20140615
  Transmission Date: 20141212
  Serious: Yes (Hospitalization)
  Sender: FDA-Public Use
  Company Number: PHHO2014GB008180

PATIENT
  Sex: 0

DRUGS (11)
  1. ACZ885 [Suspect]
     Indication: CARDIOVASCULAR EVENT PROPHYLAXIS
     Dosage: 300 MG, A
     Route: 058
     Dates: start: 20131205
  2. GLYCERYL TRINITRATE [Concomitant]
     Indication: ANGINA PECTORIS
     Dosage: 400 UG, PRN
     Route: 060
  3. COD LIVER OIL [Concomitant]
     Indication: SUPPLEMENTATION THERAPY
     Dosage: 1000 MG, PRN
     Route: 048
     Dates: start: 201205
  4. RANIC//RANITIDINE HYDROCHLORIDE [Concomitant]
     Indication: DYSPEPSIA
     Dosage: 1 DF, PRN
     Route: 048
     Dates: start: 201210
  5. EPHEDRINE HCL [Concomitant]
     Indication: SINUSITIS
     Dosage: PRN
     Route: 055
     Dates: start: 20131209
  6. BISOPROLOL [Concomitant]
     Indication: MYOCARDIAL INFARCTION
     Dosage: 2.5 MG, QD
     Route: 048
     Dates: start: 20120213
  7. ASPIRIN [Concomitant]
     Indication: MYOCARDIAL INFARCTION
     Dosage: 75 MG, QD
     Route: 048
     Dates: start: 20120213
  8. SIMVASTATIN [Concomitant]
     Indication: MYOCARDIAL INFARCTION
     Dosage: 40 MG, QD
     Route: 048
     Dates: start: 20120213
  9. RAMIPRIL [Concomitant]
     Indication: MYOCARDIAL INFARCTION
     Dosage: 5 MG, BID
     Route: 048
     Dates: start: 20120213
  10. DOVONEX [Concomitant]
     Indication: PSORIASIS
     Dosage: 50 UG, QD
     Route: 061
     Dates: start: 20091130
  11. CIALIS [Concomitant]
     Indication: ERECTILE DYSFUNCTION
     Dosage: 20 MG, PRN
     Route: 048
     Dates: start: 20131105

REACTIONS (1)
  - Calculus ureteric [Recovered/Resolved]
